FAERS Safety Report 14851847 (Version 1)
Quarter: 2018Q2

REPORT INFORMATION
  Report Type: Spontaneous
  Country: US (occurrence: US)
  Receive Date: 20180507
  Receipt Date: 20180507
  Transmission Date: 20180711
  Serious: No
  Sender: FDA-Public Use
  Company Number: US-009507513-1804USA010459

PATIENT
  Sex: Female

DRUGS (1)
  1. ASMANEX [Suspect]
     Active Substance: MOMETASONE FUROATE
     Dosage: STRENGTH REPORTED AS 200 Y, UNK
     Route: 055

REACTIONS (3)
  - Dysphonia [Unknown]
  - Cough [Unknown]
  - Product quality issue [Unknown]
